FAERS Safety Report 8375990-5 (Version None)
Quarter: 2012Q2

REPORT INFORMATION
  Report Type: 
  Country: None (occurrence: None)
  Receive Date: 20120518
  Receipt Date: 20120508
  Transmission Date: 20120825
  Serious: Yes (Hospitalization, Other)
  Sender: FDA-Public Use
  Company Number: AUR-APL-2012-02082

PATIENT
  Age: 58 Year
  Sex: Male

DRUGS (7)
  1. LEVOFLOXACIN [Suspect]
     Indication: OTITIS MEDIA
     Dosage: (750 MG, 1 D)
  2. LEVOFLOXACIN [Suspect]
     Indication: CELLULITIS
     Dosage: (750 MG, 1 D)
  3. CEFDINIR [Concomitant]
  4. AMOXICILLIN/CLAVULANIC ACID (SPEKTRAMOX /02043401/) [Concomitant]
  5. PRINZIDE [Concomitant]
  6. SIMVASTATIN [Suspect]
     Indication: OBESITY
     Dosage: (20 MG, 1 D)
  7. SIMVASTATIN [Suspect]
     Indication: HYPERLIPIDAEMIA
     Dosage: (20 MG, 1 D)

REACTIONS (3)
  - TENDONITIS [None]
  - ABASIA [None]
  - ARTHRALGIA [None]
